FAERS Safety Report 19014362 (Version 1)
Quarter: 2021Q1

REPORT INFORMATION
  Report Type: Spontaneous
  Country: DE (occurrence: DE)
  Receive Date: 20210316
  Receipt Date: 20210316
  Transmission Date: 20210420
  Serious: Yes (Other)
  Sender: FDA-Public Use
  Company Number: DE-DEXPHARM-20210324

PATIENT
  Age: 65 Year
  Sex: Female
  Weight: 97 kg

DRUGS (2)
  1. ESOMEPRAZOL ARISTO 40 MG MAGENSAFTRESISTENTE HARTKAPSELN [Suspect]
     Active Substance: ESOMEPRAZOLE MAGNESIUM
     Indication: GASTRITIS
     Dosage: IN THE PERIOD FROM 20JUN2020 TO 20AUG2020: 3 TIMES A DAY, PANTOPRAZOLE, THEN ESOMEPRAZOLE ONCE A DAY
     Dates: end: 20200820
  2. PANTOPRAZOLE SODIUM. [Interacting]
     Active Substance: PANTOPRAZOLE SODIUM
     Indication: GASTRITIS
     Dosage: IN THE PERIOD FROM 20JUN2020 TO 20AUG2020: 3 TIMES A DAY, PANTOPRAZOLE, THEN ESOMEPRAZOLE ONCE A DAY
     Route: 048
     Dates: start: 20200620

REACTIONS (4)
  - Drug interaction [Unknown]
  - Joint swelling [Recovering/Resolving]
  - Haemarthrosis [Recovering/Resolving]
  - Arthralgia [Recovering/Resolving]

NARRATIVE: CASE EVENT DATE: 202009
